FAERS Safety Report 23165407 (Version 1)
Quarter: 2023Q4

REPORT INFORMATION
  Report Type: Spontaneous
  Country: US (occurrence: US)
  Receive Date: 20231109
  Receipt Date: 20231109
  Transmission Date: 20240109
  Serious: No
  Sender: FDA-Public Use
  Company Number: US-BRISTOL-MYERS SQUIBB COMPANY-2023-159630

PATIENT
  Age: 57 Year
  Sex: Male

DRUGS (1)
  1. SOTYKTU [Suspect]
     Active Substance: DEUCRAVACITINIB
     Indication: Pruritus
     Dosage: DOSE : UNKNOWN;     FREQ : UNKNOWN

REACTIONS (3)
  - Off label use [Unknown]
  - Headache [Unknown]
  - Dizziness [Unknown]
